FAERS Safety Report 9374668 (Version 1)
Quarter: 2013Q2

REPORT INFORMATION
  Report Type: Spontaneous
  Country: US (occurrence: US)
  Receive Date: 20130628
  Receipt Date: 20130628
  Transmission Date: 20140414
  Serious: Yes (Other)
  Sender: FDA-Public Use
  Company Number: CHPA2013US010406

PATIENT
  Age: 48 Year
  Sex: Male

DRUGS (4)
  1. EXCEDRIN EXTRA STRENGTH [Suspect]
     Indication: HEADACHE
     Dosage: 2 DF, UNK
     Route: 048
  2. EXCEDRIN EXTRA STRENGTH [Suspect]
     Dosage: 6 TO 12 DF, PER DAY
     Route: 048
  3. EXCEDRIN EXTRA STRENGTH [Suspect]
     Indication: HEADACHE
     Dosage: 1 TO 2 DF, UNK
     Route: 048
  4. EXCEDRIN EXTRA STRENGTH [Suspect]
     Dosage: 6 TO 12 DF, PER DAY
     Route: 048

REACTIONS (3)
  - Gastrointestinal haemorrhage [Recovered/Resolved]
  - Drug abuse [Recovered/Resolved]
  - Incorrect dose administered [Unknown]
